FAERS Safety Report 21937732 (Version 2)
Quarter: 2023Q1

REPORT INFORMATION
  Report Type: Spontaneous
  Country: IT (occurrence: IT)
  Receive Date: 20230201
  Receipt Date: 20230206
  Transmission Date: 20230418
  Serious: Yes (Hospitalization)
  Sender: FDA-Public Use
  Company Number: None

PATIENT
  Age: 74 Year
  Sex: Male
  Weight: 67 kg

DRUGS (5)
  1. PEMETREXED [Suspect]
     Active Substance: PEMETREXED
     Indication: Lung adenocarcinoma
     Dosage: 400 MG, WITH 10^ IV INFUSION
     Route: 042
     Dates: start: 20221205
  2. CARBOPLATIN [Suspect]
     Active Substance: CARBOPLATIN
     Indication: Lung adenocarcinoma
     Dosage: 200 MG WITH 30^ IV INFUSION
     Route: 042
     Dates: start: 20221205
  3. NIVOLUMAB [Suspect]
     Active Substance: NIVOLUMAB
     Indication: Lung adenocarcinoma
     Dosage: 360 MG WITH 30^ IV INFUSION
     Route: 042
     Dates: start: 20221205
  4. IPILIMUMAB [Suspect]
     Active Substance: IPILIMUMAB
     Indication: Lung adenocarcinoma
     Dosage: 67 MG WITH IV INFUSION IN 30^
     Route: 042
     Dates: start: 20221205
  5. IPILIMUMAB [Suspect]
     Active Substance: IPILIMUMAB
     Dosage: 67 MG WITH IV INFUSION IN 30^
     Route: 042

REACTIONS (6)
  - Bradycardia [Recovering/Resolving]
  - Myasthenic syndrome [Recovering/Resolving]
  - Dysarthria [Recovering/Resolving]
  - Dyspnoea [Recovering/Resolving]
  - Dysphonia [Unknown]
  - Gravitational oedema [Unknown]

NARRATIVE: CASE EVENT DATE: 20230102
